FAERS Safety Report 20354764 (Version 1)
Quarter: 2022Q1

REPORT INFORMATION
  Report Type: Spontaneous
  Country: US (occurrence: US)
  Receive Date: 20220120
  Receipt Date: 20220120
  Transmission Date: 20220424
  Serious: Yes (Life-Threatening, Hospitalization)
  Sender: FDA-Public Use
  Company Number: US-AVET LIFESCIENCES LTD-2022-AVET-000008

PATIENT
  Age: 36 Year
  Sex: Male

DRUGS (2)
  1. METFORMIN [Suspect]
     Active Substance: METFORMIN HYDROCHLORIDE
     Dosage: UNK
  2. TRAZODONE [Suspect]
     Active Substance: TRAZODONE HYDROCHLORIDE
     Indication: Product used for unknown indication
     Dosage: UNK

REACTIONS (8)
  - Suicide attempt [Recovering/Resolving]
  - Overdose [Unknown]
  - Expired product administered [Unknown]
  - Hypotension [Unknown]
  - Coma [Unknown]
  - Hypoglycaemia [Unknown]
  - Lactic acidosis [Recovering/Resolving]
  - Distributive shock [Recovering/Resolving]
